FAERS Safety Report 17039128 (Version 2)
Quarter: 2020Q3

REPORT INFORMATION
  Report Type: Spontaneous
  Country: US (occurrence: US)
  Receive Date: 20191115
  Receipt Date: 20200701
  Transmission Date: 20201102
  Serious: No
  Sender: FDA-Public Use
  Company Number: US-SA-2019SA313872

PATIENT

DRUGS (2)
  1. VPRIV [Concomitant]
     Active Substance: VELAGLUCERASE ALFA
     Indication: GAUCHER^S DISEASE
     Dosage: 50 IU/G
     Route: 042
     Dates: start: 20140228
  2. CEREZYME [Suspect]
     Active Substance: IMIGLUCERASE
     Indication: GAUCHER^S DISEASE
     Dosage: 60 IU/KG
     Route: 041
     Dates: start: 20041005, end: 20131114

REACTIONS (1)
  - Drug exposure before pregnancy [Unknown]
